FAERS Safety Report 9474055 (Version 2)
Quarter: 2013Q3

REPORT INFORMATION
  Report Type: Report from Study
  Country: CN (occurrence: CN)
  Receive Date: 20130823
  Receipt Date: 20130823
  Transmission Date: 20140515
  Serious: Yes (Hospitalization, Disabling)
  Sender: FDA-Public Use
  Company Number: PHHO2009CN04815

PATIENT
  Age: 49 Year
  Sex: Male
  Weight: 70 kg

DRUGS (11)
  1. ALISKIREN [Suspect]
     Indication: CARDIOVASCULAR DISORDER
     Route: 048
     Dates: start: 20090121, end: 20090302
  2. ALISKIREN [Suspect]
     Route: 048
     Dates: end: 20120318
  3. BENAZEPRIL [Suspect]
  4. AMLODIPINE [Concomitant]
  5. LASIX [Concomitant]
  6. NOVOMIX [Concomitant]
  7. PIPERAZINE [Concomitant]
  8. PERSANTINE [Concomitant]
  9. KETOSTERIL [Concomitant]
     Indication: DIABETIC NEPHROPATHY
     Dosage: 4 MG, QD
     Route: 048
     Dates: start: 20081210
  10. LEVOCARNITINE [Concomitant]
     Indication: DIABETIC NEPHROPATHY
     Dosage: 1 G, PRN
     Dates: start: 2011
  11. CLOPIDOGREL [Concomitant]

REACTIONS (6)
  - Renal impairment [Recovered/Resolved]
  - Blood creatinine increased [Recovered/Resolved]
  - Renal failure chronic [Not Recovered/Not Resolved]
  - Concomitant disease progression [Recovering/Resolving]
  - Oedema peripheral [Recovering/Resolving]
  - Eyelid oedema [Recovering/Resolving]
